FAERS Safety Report 21386203 (Version 1)
Quarter: 2022Q3

REPORT INFORMATION
  Report Type: Spontaneous
  Country: US (occurrence: None)
  Receive Date: 20220926
  Receipt Date: 20220926
  Transmission Date: 20221027
  Serious: No
  Sender: FDA-Public Use
  Company Number: None

PATIENT
  Age: 29 Year
  Sex: Female

DRUGS (1)
  1. TREMFYA [Suspect]
     Active Substance: GUSELKUMAB
     Indication: Psoriasis
     Dosage: 100MG  EVERY 8 WEEKS SUBCUTANEOUSLY?
     Route: 058
     Dates: start: 20210805

REACTIONS (2)
  - Incorrect dose administered by device [None]
  - Injection site haemorrhage [None]

NARRATIVE: CASE EVENT DATE: 20220921
